FAERS Safety Report 13974882 (Version 5)
Quarter: 2023Q1

REPORT INFORMATION
  Report Type: Spontaneous
  Country: CA (occurrence: CA)
  Receive Date: 20170915
  Receipt Date: 20230124
  Transmission Date: 20230418
  Serious: Yes (Death, Hospitalization)
  Sender: FDA-Public Use
  Company Number: None

PATIENT
  Age: 18 Year
  Sex: Female
  Weight: 63 kg

DRUGS (10)
  1. ACETAMINOPHEN [Suspect]
     Active Substance: ACETAMINOPHEN
     Indication: Product used for unknown indication
     Dosage: APPROXIMATELY 40 PILLS OF UNSPECIFIED STRENGTH
     Route: 048
  2. DIPHENHYDRAMINE HYDROCHLORIDE [Suspect]
     Active Substance: DIPHENHYDRAMINE HYDROCHLORIDE
     Indication: Product used for unknown indication
     Route: 065
  3. QUETIAPINE [Suspect]
     Active Substance: QUETIAPINE
     Indication: Product used for unknown indication
     Dosage: APPROXIMATELY  20 PILLS OF 25 MG
     Route: 048
  4. QUETIAPINE [Suspect]
     Active Substance: QUETIAPINE
     Route: 048
  5. ASPIRIN [Suspect]
     Active Substance: ASPIRIN
     Indication: Product used for unknown indication
     Dosage: APPROXIMATELY 15 PILLS OF UNSPECIFIED STRENGTH
     Route: 048
  6. ALCOHOL [Suspect]
     Active Substance: ALCOHOL
     Indication: Product used for unknown indication
     Route: 048
  7. CITALOPRAM [Suspect]
     Active Substance: CITALOPRAM HYDROBROMIDE
     Indication: Product used for unknown indication
     Route: 065
  8. PROPOFOL [Suspect]
     Active Substance: PROPOFOL
     Indication: Product used for unknown indication
     Route: 065
  9. ATOMOXETINE [Concomitant]
     Active Substance: ATOMOXETINE
     Indication: Product used for unknown indication
     Route: 065
  10. ISONIAZID [Concomitant]
     Active Substance: ISONIAZID
     Indication: Product used for unknown indication
     Route: 065

REACTIONS (7)
  - Completed suicide [Fatal]
  - Overdose [Fatal]
  - Liver injury [Fatal]
  - Cardiac arrest [Fatal]
  - Myocarditis [Fatal]
  - Atrial fibrillation [Fatal]
  - Encephalopathy [Fatal]
